FAERS Safety Report 12629823 (Version 3)
Quarter: 2016Q4

REPORT INFORMATION
  Report Type: Spontaneous
  Country: US (occurrence: US)
  Receive Date: 20160808
  Receipt Date: 20161212
  Transmission Date: 20170207
  Serious: Yes (Other)
  Sender: FDA-Public Use
  Company Number: US-AMGEN-USASP2016089691

PATIENT
  Age: 17 Year
  Sex: Female
  Weight: 46.4 kg

DRUGS (18)
  1. NPLATE [Suspect]
     Active Substance: ROMIPLOSTIM
     Dosage: 150 MCG, QWK
     Route: 058
     Dates: start: 20160624
  2. NPLATE [Suspect]
     Active Substance: ROMIPLOSTIM
     Dosage: 500 MCG, QWK
     Route: 058
     Dates: start: 20160923
  3. NPLATE [Suspect]
     Active Substance: ROMIPLOSTIM
     Dosage: 150 MCG, QWK
     Route: 058
     Dates: start: 20160610
  4. NPLATE [Suspect]
     Active Substance: ROMIPLOSTIM
     Dosage: 150 MCG, QWK
     Route: 058
     Dates: start: 20160617
  5. NPLATE [Suspect]
     Active Substance: ROMIPLOSTIM
     Dosage: 250 MCG, QWK
     Route: 058
     Dates: start: 20160722
  6. SOLU-MEDROL [Concomitant]
     Active Substance: METHYLPREDNISOLONE SODIUM SUCCINATE
     Dosage: 1000 MG, UNK
     Route: 042
     Dates: start: 20160205
  7. NPLATE [Suspect]
     Active Substance: ROMIPLOSTIM
     Dosage: 10 MUG/KG, UNK
     Route: 058
     Dates: start: 20161007
  8. NORGESTIMATE AND ETHINYL ESTRADIOL [Concomitant]
     Active Substance: ETHINYL ESTRADIOL\NORGESTIMATE
     Dosage: 90-20 MUG, UNK
     Route: 048
  9. NPLATE [Suspect]
     Active Substance: ROMIPLOSTIM
     Dosage: 10 MUG/KG, UNK
     Route: 058
     Dates: start: 20160930
  10. NPLATE [Suspect]
     Active Substance: ROMIPLOSTIM
     Dosage: 10 MUG/KG, UNK
     Route: 058
     Dates: start: 20161014
  11. NPLATE [Suspect]
     Active Substance: ROMIPLOSTIM
     Dosage: 10 MUG/KG, UNK
     Route: 058
     Dates: start: 20161021
  12. NPLATE [Suspect]
     Active Substance: ROMIPLOSTIM
     Dosage: 10 MUG/KG, UNK
     Route: 058
     Dates: start: 20160923
  13. PRIVIGEN [Concomitant]
     Active Substance: HUMAN IMMUNOGLOBULIN G
     Dosage: 50 G, UNK
     Dates: start: 20160205
  14. NPLATE [Suspect]
     Active Substance: ROMIPLOSTIM
     Dosage: 4 MCG/KG, QWK
     Route: 058
  15. NPLATE [Suspect]
     Active Substance: ROMIPLOSTIM
     Indication: IMMUNE THROMBOCYTOPENIC PURPURA
     Dosage: 100 MCG, QWK
     Route: 058
     Dates: start: 20160602
  16. NPLATE [Suspect]
     Active Substance: ROMIPLOSTIM
     Dosage: 150 MCG, QWK
     Route: 058
     Dates: start: 20160701
  17. NPLATE [Suspect]
     Active Substance: ROMIPLOSTIM
     Dosage: 200 MCG, QWK
     Route: 058
     Dates: start: 20160708
  18. NPLATE [Suspect]
     Active Substance: ROMIPLOSTIM
     Dosage: 200 MCG, UNK
     Route: 058
     Dates: start: 20160715

REACTIONS (4)
  - Therapy non-responder [Unknown]
  - Off label use [Unknown]
  - Platelet count abnormal [Unknown]
  - Blood bilirubin abnormal [Unknown]

NARRATIVE: CASE EVENT DATE: 20161021
